FAERS Safety Report 5750035-1 (Version None)
Quarter: 2008Q2

REPORT INFORMATION
  Report Type: 
  Country: None (occurrence: None)
  Receive Date: 20080527
  Receipt Date: 20080430
  Transmission Date: 20081010
  Serious: No
  Sender: FDA-Public Use
  Company Number: US-BOEHRINGER INGELHEIM GMBH, GERMANY-2008-BP-07075PF

PATIENT
  Sex: Female

DRUGS (7)
  1. SPIRIVA [Suspect]
     Indication: CHRONIC OBSTRUCTIVE PULMONARY DISEASE
     Route: 055
     Dates: start: 20070101
  2. SPIRIVA [Suspect]
     Indication: EMPHYSEMA
  3. PRO-AIR [Concomitant]
  4. BONIVA [Concomitant]
  5. HCL [Concomitant]
     Indication: HYPERTENSION
  6. ZOCOR [Concomitant]
  7. CHANTIX [Concomitant]

REACTIONS (2)
  - COUGH [None]
  - DYSPNOEA [None]
